FAERS Safety Report 11418864 (Version 3)
Quarter: 2015Q3

REPORT INFORMATION
  Report Type: Spontaneous
  Country: US (occurrence: US)
  Receive Date: 20150826
  Receipt Date: 20150929
  Transmission Date: 20151125
  Serious: Yes (Other)
  Sender: FDA-Public Use
  Company Number: PHEH2015US016282

PATIENT
  Sex: Female

DRUGS (10)
  1. XARELTO [Concomitant]
     Active Substance: RIVAROXABAN
     Indication: BREAST CANCER
     Route: 065
  2. CYTOXAN [Concomitant]
     Active Substance: CYCLOPHOSPHAMIDE
     Indication: PRODUCT USED FOR UNKNOWN INDICATION
     Dosage: UNK
     Route: 065
  3. FULVESTRANT [Suspect]
     Active Substance: FULVESTRANT
     Indication: BREAST CANCER
     Route: 065
  4. PALBOCICLIB [Suspect]
     Active Substance: PALBOCICLIB
     Indication: PRODUCT USED FOR UNKNOWN INDICATION
     Dosage: UNK
     Route: 065
  5. HERCEPTIN [Concomitant]
     Active Substance: TRASTUZUMAB
     Indication: BREAST CANCER
     Dosage: UNK
     Route: 065
     Dates: start: 200812, end: 201012
  6. XGEVA [Concomitant]
     Active Substance: DENOSUMAB
     Indication: BREAST CANCER
     Route: 065
  7. FASLODEX [Concomitant]
     Active Substance: FULVESTRANT
     Indication: BREAST CANCER
     Route: 065
  8. FEMARA [Suspect]
     Active Substance: LETROZOLE
     Indication: BREAST CANCER
     Dosage: UNK
     Route: 065
     Dates: start: 200812, end: 201308
  9. FEMARA [Suspect]
     Active Substance: LETROZOLE
     Dosage: UNK
     Route: 065
  10. AROMASIN [Suspect]
     Active Substance: EXEMESTANE
     Indication: BREAST CANCER
     Dosage: UNK
     Route: 065
     Dates: start: 201308, end: 201412

REACTIONS (11)
  - Decreased activity [Unknown]
  - Breast cancer [Unknown]
  - Tooth disorder [Unknown]
  - Headache [Unknown]
  - Fatigue [Unknown]
  - Contusion [Unknown]
  - Malignant neoplasm progression [Unknown]
  - Metastases to liver [Unknown]
  - Metastases to bone [Unknown]
  - Clavicle fracture [Unknown]
  - Metastases to central nervous system [Unknown]
